FAERS Safety Report 5313805-X (Version None)
Quarter: 2007Q2

REPORT INFORMATION
  Report Type: 
  Country: None (occurrence: None)
  Receive Date: 20070501
  Receipt Date: 20070419
  Transmission Date: 20071010
  Serious: Yes (Other)
  Sender: FDA-Public Use
  Company Number: JP-ROCHE-494552

PATIENT
  Age: 20 Year
  Sex: Female

DRUGS (4)
  1. ROCEPHIN [Suspect]
     Indication: OTITIS MEDIA
     Route: 041
     Dates: start: 20070419, end: 20070419
  2. VOLTAREN [Suspect]
     Indication: DRUG USE FOR UNKNOWN INDICATION
     Route: 048
     Dates: start: 20070419
  3. MEIACT [Suspect]
     Indication: DRUG USE FOR UNKNOWN INDICATION
     Route: 048
  4. TARIVID [Suspect]
     Indication: DRUG USE FOR UNKNOWN INDICATION
     Route: 065

REACTIONS (1)
  - SHOCK [None]
